FAERS Safety Report 6790696-1 (Version None)
Quarter: 2010Q2

REPORT INFORMATION
  Report Type: 
  Country: None (occurrence: None)
  Receive Date: 20100624
  Receipt Date: 20100616
  Transmission Date: 20101027
  Serious: Yes (Hospitalization)
  Sender: FDA-Public Use
  Company Number: JP-GENENTECH-303251

PATIENT
  Age: 57 Year
  Sex: Male

DRUGS (1)
  1. GRTPA [Suspect]
     Indication: CEREBRAL INFARCTION
     Dosage: 35 ML, UNK
     Route: 042
     Dates: start: 20100604, end: 20100604

REACTIONS (1)
  - PULMONARY OEDEMA [None]
